FAERS Safety Report 10044928 (Version 1)
Quarter: 2014Q1

REPORT INFORMATION
  Report Type: Spontaneous
  Country: US (occurrence: None)
  Receive Date: 20140306
  Receipt Date: 20140306
  Transmission Date: 20141002
  Serious: Yes (Hospitalization)
  Sender: FDA-Public Use
  Company Number: 163-21880-13053093

PATIENT
  Age: 59 Year
  Sex: Female

DRUGS (1)
  1. REVLIMID (LENALIDOMIDE) (5 MILLIGRAM, CAPSULES) [Suspect]
     Indication: LYMPHOPROLIFERATIVE DISORDER
     Dosage: 5MG, 1 IN 1 D, PO
     Dates: start: 201004

REACTIONS (1)
  - Red blood cell count decreased [None]
